FAERS Safety Report 9260143 (Version 1)
Quarter: 2013Q2

REPORT INFORMATION
  Report Type: Spontaneous
  Country: US (occurrence: US)
  Receive Date: 20130429
  Receipt Date: 20130429
  Transmission Date: 20140414
  Serious: Yes (Hospitalization, Other)
  Sender: FDA-Public Use
  Company Number: US-SANOFI-AVENTIS-2013SA042688

PATIENT
  Age: 94 Year
  Sex: Male

DRUGS (9)
  1. LANTUS [Suspect]
     Route: 051
  2. LANTUS SOLOSTAR [Suspect]
     Route: 051
  3. SOLOSTAR [Suspect]
  4. HUMALOG [Concomitant]
  5. LISINOPRIL [Concomitant]
  6. HYDROCHLOROTHIAZIDE [Concomitant]
     Indication: BLOOD PRESSURE
  7. VITAMIN B12 [Concomitant]
  8. ASPIRIN [Concomitant]
  9. PROMETHAZINE [Concomitant]

REACTIONS (7)
  - Balance disorder [Unknown]
  - Malaise [Unknown]
  - Fall [Unknown]
  - Face injury [Unknown]
  - Facial bones fracture [Unknown]
  - Wrist fracture [Unknown]
  - Hypoacusis [Unknown]
